FAERS Safety Report 6692767-7 (Version None)
Quarter: 2010Q2

REPORT INFORMATION
  Report Type: 
  Country: None (occurrence: None)
  Receive Date: 20100419
  Receipt Date: 20100405
  Transmission Date: 20101027
  Serious: Yes (Death, Life-Threatening, Other)
  Sender: FDA-Public Use
  Company Number: 009453

PATIENT
  Age: 66 Year
  Sex: Male

DRUGS (4)
  1. BUSULFEX [Suspect]
     Indication: STEM CELL TRANSPLANT
  2. FLUDARABINE PHOSPHATE [Concomitant]
  3. ANTI-THYMOCYTE GLOBULIN NOS [Concomitant]
  4. AZACITIDINE (AZACITIDINE) [Concomitant]

REACTIONS (3)
  - ACUTE GRAFT VERSUS HOST DISEASE [None]
  - CONDITION AGGRAVATED [None]
  - MYELODYSPLASTIC SYNDROME [None]
